FAERS Safety Report 15244387 (Version 2)
Quarter: 2019Q2

REPORT INFORMATION
  Report Type: Spontaneous
  Country: ES (occurrence: ES)
  Receive Date: 20180806
  Receipt Date: 20190617
  Transmission Date: 20190711
  Serious: Yes (Life-Threatening, Hospitalization, Other)
  Sender: FDA-Public Use
  Company Number: ES-MYLANLABS-2018M1057580

PATIENT
  Age: 2 Year
  Sex: Female

DRUGS (1)
  1. FENTANYL. [Suspect]
     Active Substance: FENTANYL
     Indication: PRODUCT USED FOR UNKNOWN INDICATION
     Dosage: 100 MCG/H, PATCH, 2-3 MINUTES
     Route: 065

REACTIONS (16)
  - Pupil fixed [Unknown]
  - Drug diversion [Unknown]
  - Dyspnoea [Unknown]
  - Cyanosis [Unknown]
  - Drug abuse [Unknown]
  - Overdose [Unknown]
  - Toxicity to various agents [Recovering/Resolving]
  - Unresponsive to stimuli [Unknown]
  - Pallor [Unknown]
  - Blood pressure fluctuation [Unknown]
  - Metabolic acidosis [Unknown]
  - Hypotonic-hyporesponsive episode [Unknown]
  - Hypothermia [Unknown]
  - Hyperglycaemia [Unknown]
  - Cardio-respiratory arrest [Unknown]
  - Intentional product misuse [Unknown]
